FAERS Safety Report 25851957 (Version 1)
Quarter: 2025Q3

REPORT INFORMATION
  Report Type: Spontaneous
  Country: US (occurrence: None)
  Receive Date: 20250925
  Receipt Date: 20250925
  Transmission Date: 20251020
  Serious: Yes (Hospitalization)
  Sender: FDA-CTU
  Company Number: None

PATIENT
  Age: 16 Year
  Sex: Female

DRUGS (1)
  1. FINGOLIMOD [Suspect]
     Active Substance: FINGOLIMOD
     Indication: Multiple sclerosis
     Dosage: 0.5MG DAILY

REACTIONS (7)
  - Loss of consciousness [None]
  - Hypotension [None]
  - Blindness unilateral [None]
  - Balance disorder [None]
  - Condition aggravated [None]
  - Multiple sclerosis [None]
  - Product dose omission in error [None]
